FAERS Safety Report 14764146 (Version 2)
Quarter: 2018Q2

REPORT INFORMATION
  Report Type: Spontaneous
  Country: US (occurrence: US)
  Receive Date: 20180416
  Receipt Date: 20180426
  Transmission Date: 20180711
  Serious: Yes (Disabling)
  Sender: FDA-Public Use
  Company Number: US-CELGENEUS-USA-20180404253

PATIENT
  Age: 67 Year
  Sex: Male
  Weight: 112 kg

DRUGS (3)
  1. REVLIMID [Suspect]
     Active Substance: LENALIDOMIDE
     Indication: OFF LABEL USE
     Dosage: 7.5-10 MILLIGRAM
     Route: 048
     Dates: start: 20171116
  2. REVLIMID [Suspect]
     Active Substance: LENALIDOMIDE
     Indication: FOLLICLE CENTRE LYMPHOMA, FOLLICULAR GRADE I, II, III
     Dosage: 20 MILLIGRAM
     Route: 048
     Dates: start: 20171003, end: 20171031
  3. REVLIMID [Suspect]
     Active Substance: LENALIDOMIDE
     Dosage: 10 MILLIGRAM
     Route: 048
     Dates: start: 201801, end: 20180418

REACTIONS (1)
  - Upper respiratory tract infection [Recovering/Resolving]

NARRATIVE: CASE EVENT DATE: 201710
